FAERS Safety Report 26108112 (Version 1)
Quarter: 2025Q4

REPORT INFORMATION
  Report Type: Spontaneous
  Country: JP (occurrence: JP)
  Receive Date: 20251201
  Receipt Date: 20251201
  Transmission Date: 20260118
  Serious: Yes (Life-Threatening, Hospitalization, Other)
  Sender: SLATE RUN
  Company Number: JP-SLATERUN-2025SRLIT00221

PATIENT
  Age: 15 Year
  Sex: Female

DRUGS (3)
  1. GUANFACINE [Suspect]
     Active Substance: GUANFACINE
     Indication: Attention deficit hyperactivity disorder
     Dosage: EXTENDED-RELEASE
     Route: 065
  2. GUANFACINE [Suspect]
     Active Substance: GUANFACINE
     Dosage: EXTENDED-RELEASE
     Route: 065
  3. GUANFACINE [Suspect]
     Active Substance: GUANFACINE
     Dosage: EXTENDED-RELEASE
     Route: 065

REACTIONS (4)
  - Respiratory failure [Recovered/Resolved]
  - Stress cardiomyopathy [Recovered/Resolved]
  - Electrocardiogram QT prolonged [Recovered/Resolved]
  - Overdose [Unknown]
